FAERS Safety Report 9476833 (Version 1)
Quarter: 2013Q3

REPORT INFORMATION
  Report Type: Not Available
  Country: None (occurrence: US)
  Receive Date: 20130826
  Receipt Date: 20130826
  Transmission Date: 20140515
  Serious: No
  Sender: FDA-Public Use
  Company Number: US-TARO-2012P1060120

PATIENT
  Age: 97 Year
  Sex: Female
  Weight: 54.43 kg

DRUGS (9)
  1. CLOBETASOL PROPIONATE CREAM [Suspect]
     Dates: start: 20120802
  2. PREDNISONE [Suspect]
     Route: 048
     Dates: start: 20120802
  3. PREDNISONE [Suspect]
  4. MIDODRINE [Suspect]
     Indication: HYPOTENSION
     Route: 048
     Dates: start: 20120522, end: 20120821
  5. SYNTHROID [Concomitant]
  6. METOPROLOL [Concomitant]
  7. ECOTRIN [Concomitant]
  8. VITAMIN D [Concomitant]
  9. ZOCOR [Concomitant]

REACTIONS (2)
  - Blood pressure increased [Recovering/Resolving]
  - Urticaria [Recovering/Resolving]
